FAERS Safety Report 5706793-5 (Version None)
Quarter: 2008Q2

REPORT INFORMATION
  Report Type: 
  Country: None (occurrence: None)
  Receive Date: 20080416
  Receipt Date: 20080416
  Transmission Date: 20081010
  Serious: Yes (Hospitalization)
  Sender: FDA-Public Use
  Company Number: None

PATIENT
  Age: 21 Year
  Sex: Female
  Weight: 66.1 kg

DRUGS (1)
  1. MIFEPRISTONE [Suspect]
     Indication: ABORTION INDUCED
     Dosage: 200 MG ONE TIME PO
     Route: 048
     Dates: start: 20080408, end: 20080408

REACTIONS (6)
  - APPENDICITIS NONINFECTIVE [None]
  - HYPOTENSION [None]
  - LEUKOCYTOSIS [None]
  - NO THERAPEUTIC RESPONSE [None]
  - SHIFT TO THE LEFT [None]
  - TACHYCARDIA [None]
